FAERS Safety Report 19043915 (Version 8)
Quarter: 2023Q4

REPORT INFORMATION
  Report Type: Spontaneous
  Country: CA (occurrence: CA)
  Receive Date: 20210322
  Receipt Date: 20231211
  Transmission Date: 20240110
  Serious: Yes (Death, Life-Threatening, Hospitalization, Other)
  Sender: FDA-Public Use
  Company Number: CA-BAUSCH-BL-2021-009360

PATIENT
  Age: 72 Year
  Sex: Female
  Weight: 61 kg

DRUGS (70)
  1. BUPROPION [Suspect]
     Active Substance: BUPROPION
     Indication: Product used for unknown indication
     Dosage: BUPROPION
     Route: 065
  2. BUPROPION [Suspect]
     Active Substance: BUPROPION
     Dosage: BUPROPION
     Route: 048
  3. BUPROPION [Suspect]
     Active Substance: BUPROPION
     Dosage: BUPROPION HYDROCHLORIDE
     Route: 048
  4. BUPROPION [Suspect]
     Active Substance: BUPROPION
     Dosage: BUPROPION HYDROCHLORIDE
     Route: 048
  5. BUPROPION [Suspect]
     Active Substance: BUPROPION
     Dosage: BUPROPION XL
     Route: 048
  6. LAMOTRIGINE [Suspect]
     Active Substance: LAMOTRIGINE
     Indication: Product used for unknown indication
     Dosage: APO-LAMOTRIGINE
     Route: 048
  7. LAMOTRIGINE [Suspect]
     Active Substance: LAMOTRIGINE
     Dosage: APO-LAMOTRIGINE
     Route: 065
  8. BENZTROPINE [Suspect]
     Active Substance: BENZTROPINE
     Indication: Product used for unknown indication
     Dosage: BENZTROPINE
     Route: 048
  9. BENZTROPINE [Suspect]
     Active Substance: BENZTROPINE
     Dosage: BENZTROPINE
     Route: 065
  10. BENZTROPINE [Suspect]
     Active Substance: BENZTROPINE
     Dosage: BENZATROPINE
     Route: 048
  11. BENZTROPINE [Suspect]
     Active Substance: BENZTROPINE
     Dosage: BENZATROPINE
     Route: 065
  12. BENZTROPINE [Suspect]
     Active Substance: BENZTROPINE
     Dosage: BENZATROPINE
     Route: 065
  13. BENZTROPINE [Suspect]
     Active Substance: BENZTROPINE
     Dosage: BENZTROPINE MESYLATE
     Route: 048
  14. BENZTROPINE [Suspect]
     Active Substance: BENZTROPINE
     Dosage: BENZTROPINE MESYLATE
     Route: 065
  15. BISACODYL [Suspect]
     Active Substance: BISACODYL
     Indication: Product used for unknown indication
     Dosage: NOT SPECIFIED
     Route: 048
  16. BISACODYL [Suspect]
     Active Substance: BISACODYL
     Route: 048
  17. BISACODYL [Suspect]
     Active Substance: BISACODYL
     Route: 048
  18. BUPROPION [Suspect]
     Active Substance: BUPROPION
     Indication: Product used for unknown indication
     Route: 048
  19. BUPROPION [Suspect]
     Active Substance: BUPROPION
     Route: 048
  20. CLONAZEPAM [Suspect]
     Active Substance: CLONAZEPAM
     Indication: Product used for unknown indication
     Route: 048
  21. CLONAZEPAM [Suspect]
     Active Substance: CLONAZEPAM
     Route: 065
  22. FLOVENT HFA [Suspect]
     Active Substance: FLUTICASONE PROPIONATE
     Indication: Product used for unknown indication
     Dosage: METERED-DOSE (AEROSOL)
     Route: 055
  23. FLOVENT HFA [Suspect]
     Active Substance: FLUTICASONE PROPIONATE
     Dosage: METERED-DOSE (AEROSOL)
     Route: 065
  24. FLOVENT HFA [Suspect]
     Active Substance: FLUTICASONE PROPIONATE
     Dosage: METERED-DOSE (AEROSOL)
     Route: 050
  25. FLOVENT HFA [Suspect]
     Active Substance: FLUTICASONE PROPIONATE
     Route: 050
  26. FLOVENT HFA [Suspect]
     Active Substance: FLUTICASONE PROPIONATE
     Route: 065
  27. FLOVENT HFA [Suspect]
     Active Substance: FLUTICASONE PROPIONATE
     Dosage: METERED-DOSE (AEROSOL)
     Route: 055
  28. FLOVENT HFA [Suspect]
     Active Substance: FLUTICASONE PROPIONATE
     Route: 055
  29. FLOVENT HFA [Suspect]
     Active Substance: FLUTICASONE PROPIONATE
     Route: 065
  30. LAMOTRIGINE [Suspect]
     Active Substance: LAMOTRIGINE
     Indication: Product used for unknown indication
     Route: 048
  31. LAMOTRIGINE [Suspect]
     Active Substance: LAMOTRIGINE
     Route: 065
  32. LAMOTRIGINE [Suspect]
     Active Substance: LAMOTRIGINE
     Route: 065
  33. LEVOTHYROXINE SODIUM [Suspect]
     Active Substance: LEVOTHYROXINE SODIUM
     Indication: Product used for unknown indication
     Dosage: NOT SPECIFIED
     Route: 048
  34. LEVOTHYROXINE SODIUM [Suspect]
     Active Substance: LEVOTHYROXINE SODIUM
     Route: 048
  35. LEVOTHYROXINE SODIUM [Suspect]
     Active Substance: LEVOTHYROXINE SODIUM
     Route: 065
  36. LINACLOTIDE [Suspect]
     Active Substance: LINACLOTIDE
     Indication: Irritable bowel syndrome
     Route: 048
  37. LINACLOTIDE [Suspect]
     Active Substance: LINACLOTIDE
     Route: 048
  38. LINACLOTIDE [Suspect]
     Active Substance: LINACLOTIDE
     Route: 048
  39. POLYETHYLENE GLYCOLS [Suspect]
     Active Substance: POLYETHYLENE GLYCOLS
     Indication: Product used for unknown indication
     Dosage: MACROGOL 3350
     Route: 048
  40. POLYETHYLENE GLYCOLS [Suspect]
     Active Substance: POLYETHYLENE GLYCOLS
     Dosage: MACROGOL
     Route: 048
  41. POLYETHYLENE GLYCOLS [Suspect]
     Active Substance: POLYETHYLENE GLYCOLS
     Dosage: MACROGOL 3350
     Route: 065
  42. MELATONIN [Suspect]
     Active Substance: MELATONIN
     Indication: Product used for unknown indication
     Dosage: NOT SPECIFIED
     Route: 060
  43. POTASSIUM CHLORIDE [Suspect]
     Active Substance: POTASSIUM CHLORIDE
     Indication: Product used for unknown indication
     Route: 048
  44. POTASSIUM CHLORIDE [Suspect]
     Active Substance: POTASSIUM CHLORIDE
     Route: 048
  45. POTASSIUM CHLORIDE [Suspect]
     Active Substance: POTASSIUM CHLORIDE
     Route: 048
  46. POTASSIUM CHLORIDE [Suspect]
     Active Substance: POTASSIUM CHLORIDE
     Route: 048
  47. POTASSIUM CHLORIDE [Suspect]
     Active Substance: POTASSIUM CHLORIDE
     Route: 065
  48. PREMARIN [Suspect]
     Active Substance: ESTROGENS, CONJUGATED
     Indication: Product used for unknown indication
     Route: 067
  49. PREMARIN [Suspect]
     Active Substance: ESTROGENS, CONJUGATED
     Route: 065
  50. PREVACID [Suspect]
     Active Substance: LANSOPRAZOLE
     Indication: Product used for unknown indication
     Route: 048
  51. PREVACID [Suspect]
     Active Substance: LANSOPRAZOLE
     Route: 065
  52. PREVACID [Suspect]
     Active Substance: LANSOPRAZOLE
     Route: 048
  53. SODIUM CITRATE\SODIUM LAURYL SULFOACETATE [Suspect]
     Active Substance: SODIUM CITRATE\SODIUM LAURYL SULFOACETATE
     Indication: Product used for unknown indication
     Route: 054
  54. SYNTHROID [Suspect]
     Active Substance: LEVOTHYROXINE SODIUM
     Indication: Product used for unknown indication
     Route: 048
  55. SYNTHROID [Suspect]
     Active Substance: LEVOTHYROXINE SODIUM
     Route: 048
  56. SODIUM CITRATE [Suspect]
     Active Substance: SODIUM CITRATE
     Indication: Product used for unknown indication
     Dosage: NOT SPECIFIED
     Route: 065
  57. SODIUM LAURYL SULFOACETATE [Suspect]
     Active Substance: SODIUM LAURYL SULFOACETATE
     Indication: Product used for unknown indication
     Route: 065
  58. ZOFRAN [Suspect]
     Active Substance: ONDANSETRON HYDROCHLORIDE
     Indication: Product used for unknown indication
     Dosage: ZOFRAN
     Route: 060
  59. ZOFRAN [Suspect]
     Active Substance: ONDANSETRON HYDROCHLORIDE
     Dosage: ONDANSETRON
     Route: 060
  60. ZOFRAN [Suspect]
     Active Substance: ONDANSETRON HYDROCHLORIDE
     Dosage: ONDANSETRON HYDROCHLORIDE
     Route: 060
  61. CONJUGATED ESTROGENS [Suspect]
     Active Substance: ESTROGENS, CONJUGATED
     Indication: Product used for unknown indication
     Route: 065
  62. CONJUGATED ESTROGENS [Suspect]
     Active Substance: ESTROGENS, CONJUGATED
     Route: 067
  63. FLUTICASONE PROPIONATE [Suspect]
     Active Substance: FLUTICASONE PROPIONATE
     Indication: Product used for unknown indication
     Route: 055
  64. FLUTICASONE PROPIONATE [Suspect]
     Active Substance: FLUTICASONE PROPIONATE
     Route: 055
  65. FLUTICASONE PROPIONATE [Suspect]
     Active Substance: FLUTICASONE PROPIONATE
     Route: 055
  66. FLUTICASONE PROPIONATE [Suspect]
     Active Substance: FLUTICASONE PROPIONATE
     Route: 055
  67. FLUTICASONE PROPIONATE [Suspect]
     Active Substance: FLUTICASONE PROPIONATE
     Route: 065
  68. LANSOPRAZOLE [Suspect]
     Active Substance: LANSOPRAZOLE
     Indication: Product used for unknown indication
     Route: 048
  69. LANSOPRAZOLE [Suspect]
     Active Substance: LANSOPRAZOLE
     Dosage: DELAYED RELEASE
     Route: 065
  70. PREVACID [Concomitant]
     Active Substance: LANSOPRAZOLE
     Indication: Product used for unknown indication

REACTIONS (2)
  - Cardiac arrest [Fatal]
  - Death [Fatal]
